FAERS Safety Report 6305856-3 (Version None)
Quarter: 2009Q3

REPORT INFORMATION
  Report Type: 
  Country: None (occurrence: None)
  Receive Date: 20090812
  Receipt Date: 20090805
  Transmission Date: 20100115
  Serious: Yes (Other)
  Sender: FDA-Public Use
  Company Number: US-BRISTOL-MYERS SQUIBB COMPANY-14736334

PATIENT
  Age: 38 Year
  Sex: Female

DRUGS (2)
  1. MEGACE ES [Suspect]
     Indication: WEIGHT INCREASED
     Dosage: 1DF=1 TEASPOONFUL
     Dates: end: 20070101
  2. MEGACE [Suspect]
     Indication: WEIGHT INCREASED
     Dosage: 1 DOSAGE FORM = 1 TEASPOONFUL
     Dates: end: 20070101

REACTIONS (2)
  - INFERTILITY [None]
  - MENSTRUAL DISORDER [None]
